FAERS Safety Report 9635421 (Version 5)
Quarter: 2013Q4

REPORT INFORMATION
  Report Type: Report from Study
  Country: CA (occurrence: CA)
  Receive Date: 20131021
  Receipt Date: 20131113
  Transmission Date: 20140711
  Serious: Yes (Other)
  Sender: FDA-Public Use
  Company Number: CA-ROCHE-1290781

PATIENT
  Age: 51 Year
  Sex: Female
  Weight: 62 kg

DRUGS (6)
  1. AVASTIN [Suspect]
     Indication: GLIOBLASTOMA
     Route: 042
     Dates: start: 20131003, end: 20131029
  2. KEPPRA [Concomitant]
     Route: 065
  3. DECADRON [Concomitant]
     Dosage: TO BE TITRATED OFF
     Route: 065
  4. TYLENOL #3 (CANADA) [Concomitant]
     Dosage: AT NIGHT AS NEEDED
     Route: 065
  5. TYLENOL EXTRA STRENGTH [Concomitant]
     Indication: HEADACHE
     Dosage: AS NEEDED Q 6 HOURS
     Route: 065
  6. TYLENOL EXTRA STRENGTH [Concomitant]
     Indication: MUSCULOSKELETAL PAIN

REACTIONS (14)
  - Macrocytosis [Unknown]
  - Blood pressure increased [Not Recovered/Not Resolved]
  - Mental status changes [Not Recovered/Not Resolved]
  - Pain [Not Recovered/Not Resolved]
  - Red blood cell count decreased [Unknown]
  - Mean cell volume increased [Unknown]
  - Mean cell haemoglobin increased [Unknown]
  - Red cell distribution width increased [Unknown]
  - Lymphocyte count decreased [Unknown]
  - Myelocyte present [Unknown]
  - Mean cell haemoglobin increased [Not Recovered/Not Resolved]
  - Disease progression [Not Recovered/Not Resolved]
  - General physical health deterioration [Not Recovered/Not Resolved]
  - Gait disturbance [Not Recovered/Not Resolved]
